FAERS Safety Report 5930190-0 (Version None)
Quarter: 2008Q4

REPORT INFORMATION
  Report Type: 
  Country: None (occurrence: None)
  Receive Date: 20081024
  Receipt Date: 20081013
  Transmission Date: 20090506
  Serious: Yes (Other)
  Sender: FDA-Public Use
  Company Number: GB-PFIZER INC-2008086997

PATIENT
  Age: 39 Year
  Sex: Male
  Weight: 93 kg

DRUGS (2)
  1. CHAMPIX [Suspect]
     Indication: SMOKING CESSATION THERAPY
     Route: 048
     Dates: start: 20080828, end: 20080925
  2. VALPROATE SODIUM [Concomitant]
     Dates: start: 20010101

REACTIONS (2)
  - PEAK EXPIRATORY FLOW RATE DECREASED [None]
  - WHEEZING [None]
